FAERS Safety Report 10153635 (Version 1)
Quarter: 2014Q2

REPORT INFORMATION
  Report Type: Report from Study
  Country: DE (occurrence: DE)
  Receive Date: 20140505
  Receipt Date: 20140505
  Transmission Date: 20141212
  Serious: Yes (Other)
  Sender: FDA-Public Use
  Company Number: DE-ABBVIE-14P-062-1231092-00

PATIENT
  Sex: Female

DRUGS (7)
  1. HUMIRA [Suspect]
     Indication: PSORIATIC ARTHROPATHY
     Route: 058
     Dates: start: 20070413, end: 20140107
  2. HUMIRA [Suspect]
     Route: 058
     Dates: start: 20140318
  3. ANALGESICS [Concomitant]
     Indication: PRODUCT USED FOR UNKNOWN INDICATION
  4. EUTHYROX [Concomitant]
     Indication: PRODUCT USED FOR UNKNOWN INDICATION
  5. HYDROCHLOROTHIAZIDE [Concomitant]
     Indication: PRODUCT USED FOR UNKNOWN INDICATION
  6. DOXAZOSINE [Concomitant]
     Indication: PRODUCT USED FOR UNKNOWN INDICATION
  7. L-THYROXINE [Concomitant]
     Indication: PRODUCT USED FOR UNKNOWN INDICATION

REACTIONS (1)
  - Visual acuity reduced [Recovering/Resolving]
